FAERS Safety Report 5730340-5 (Version None)
Quarter: 2008Q2

REPORT INFORMATION
  Report Type: 
  Country: None (occurrence: None)
  Receive Date: 20080502
  Receipt Date: 20080430
  Transmission Date: 20081010
  Serious: Yes (Hospitalization)
  Sender: FDA-Public Use
  Company Number: 08H-163-0314227-00

PATIENT
  Age: 63 Year
  Sex: Male
  Weight: 81.6475 kg

DRUGS (1)
  1. PANHEPRIN [Suspect]
     Indication: FLUSHING
     Dosage: ONCE, PICC LINE
     Dates: start: 20080430, end: 20080430

REACTIONS (1)
  - ANAPHYLACTIC REACTION [None]
